FAERS Safety Report 24543745 (Version 1)
Quarter: 2024Q4

REPORT INFORMATION
  Report Type: Report from Study
  Country: US (occurrence: US)
  Receive Date: 20241024
  Receipt Date: 20241024
  Transmission Date: 20250114
  Serious: Yes (Hospitalization)
  Sender: NOVARTIS
  Company Number: US-002147023-NVSC2024US205753

PATIENT
  Sex: Female

DRUGS (1)
  1. KISQALI [Interacting]
     Active Substance: RIBOCICLIB
     Indication: Product used for unknown indication
     Dosage: 600 MG, UNKNOWN
     Route: 048

REACTIONS (1)
  - Drug interaction [Unknown]
